FAERS Safety Report 8455546-6 (Version None)
Quarter: 2012Q2

REPORT INFORMATION
  Report Type: 
  Country: None (occurrence: None)
  Receive Date: 20120621
  Receipt Date: 20120613
  Transmission Date: 20120825
  Serious: Yes (Hospitalization, Other)
  Sender: FDA-Public Use
  Company Number: BR-PFIZER INC-2012118868

PATIENT
  Age: 75 Year
  Sex: Female

DRUGS (3)
  1. XALATAN [Suspect]
     Indication: CATARACT
     Dosage: 3 UG (ONE DROP  IN EACH EYE), 1X/DAY
     Route: 047
     Dates: start: 20060706
  2. INSULIN [Concomitant]
     Indication: DIABETES MELLITUS
     Dosage: UNK
  3. XALATAN [Suspect]
     Indication: OPEN ANGLE GLAUCOMA

REACTIONS (2)
  - CATARACT [None]
  - COAGULOPATHY [None]
